FAERS Safety Report 7539304-2 (Version None)
Quarter: 2011Q2

REPORT INFORMATION
  Report Type: 
  Country: None (occurrence: None)
  Receive Date: 20110610
  Receipt Date: 20110531
  Transmission Date: 20111010
  Serious: Yes (Other)
  Sender: FDA-Public Use
  Company Number: US-ELI_LILLY_AND_COMPANY-US201105006289

PATIENT
  Sex: Male
  Weight: 113.38 kg

DRUGS (2)
  1. VICTOZA [Concomitant]
  2. BYETTA [Suspect]
     Indication: TYPE 2 DIABETES MELLITUS
     Dosage: 10 UG, UNK

REACTIONS (12)
  - BLOOD GLUCOSE INCREASED [None]
  - FLATULENCE [None]
  - PANCREATITIS [None]
  - EYE HAEMORRHAGE [None]
  - DEHYDRATION [None]
  - DRUG DISPENSING ERROR [None]
  - NAUSEA [None]
  - OFF LABEL USE [None]
  - RETINOPATHY [None]
  - CORONARY ARTERY BYPASS [None]
  - DIARRHOEA [None]
  - ADENOMA BENIGN [None]
